FAERS Safety Report 9739287 (Version 3)
Quarter: 2014Q1

REPORT INFORMATION
  Report Type: Spontaneous
  Country: JP (occurrence: JP)
  Receive Date: 20131209
  Receipt Date: 20140318
  Transmission Date: 20141002
  Serious: No
  Sender: FDA-Public Use
  Company Number: JP-ELI_LILLY_AND_COMPANY-JP201309003295

PATIENT
  Age: 28 Year
  Sex: Female
  Weight: 63.6 kg

DRUGS (2)
  1. CYMBALTA [Suspect]
     Indication: DEPRESSION
     Dosage: 20 MG, QOD
     Route: 048
     Dates: start: 200710
  2. CYMBALTA [Suspect]
     Dosage: 30 MG, QOD
     Route: 048

REACTIONS (2)
  - Liver function test abnormal [Unknown]
  - Maternal exposure during pregnancy [Not Recovered/Not Resolved]
